FAERS Safety Report 7329283-5 (Version None)
Quarter: 2011Q1

REPORT INFORMATION
  Report Type: 
  Country: None (occurrence: None)
  Receive Date: 20110303
  Receipt Date: 20110223
  Transmission Date: 20110831
  Serious: Yes (Other)
  Sender: FDA-Public Use
  Company Number: B0698544A

PATIENT
  Sex: Female

DRUGS (2)
  1. NORDETTE-21 [Concomitant]
     Indication: ORAL CONTRACEPTION
     Route: 048
     Dates: start: 20100401
  2. SORIATANE [Suspect]
     Dosage: 25MG PER DAY
     Route: 048
     Dates: start: 20100707

REACTIONS (3)
  - PREGNANCY ON ORAL CONTRACEPTIVE [None]
  - DRUG EXPOSURE DURING PREGNANCY [None]
  - ABORTION INDUCED [None]
